FAERS Safety Report 17419025 (Version 2)
Quarter: 2020Q1

REPORT INFORMATION
  Report Type: Spontaneous
  Country: KR (occurrence: KR)
  Receive Date: 20200214
  Receipt Date: 20200227
  Transmission Date: 20200409
  Serious: No
  Sender: FDA-Public Use
  Company Number: KR-SA-2020SA013947

PATIENT
  Age: 43 Year
  Sex: Female

DRUGS (3)
  1. DUPIXENT [Suspect]
     Active Substance: DUPILUMAB
     Indication: DERMATITIS ATOPIC
     Dosage: 600 MG
     Route: 058
  2. DUPIXENT [Suspect]
     Active Substance: DUPILUMAB
     Dosage: 300 MG, Q5W
     Route: 058
  3. LEVOCETIRIZINE [Concomitant]
     Active Substance: LEVOCETIRIZINE
     Route: 048

REACTIONS (9)
  - Skin plaque [Unknown]
  - Skin lesion [Unknown]
  - Dermatitis psoriasiform [Unknown]
  - Skin exfoliation [Unknown]
  - Rash erythematous [Unknown]
  - Lymphocytic infiltration [Unknown]
  - Rash papular [Unknown]
  - Eczema [Unknown]
  - Acanthosis [Unknown]
